FAERS Safety Report 24948427 (Version 1)
Quarter: 2025Q1

REPORT INFORMATION
  Report Type: Spontaneous
  Country: US (occurrence: US)
  Receive Date: 20250210
  Receipt Date: 20250210
  Transmission Date: 20250408
  Serious: Yes (Hospitalization)
  Sender: ROCHE
  Company Number: US-ROCHE-10000197243

PATIENT
  Age: 34 Year
  Sex: Female

DRUGS (5)
  1. CELLCEPT [Suspect]
     Active Substance: MYCOPHENOLATE MOFETIL
     Indication: Product used for unknown indication
     Route: 065
  2. LUPKYNIS [Suspect]
     Active Substance: VOCLOSPORIN
     Indication: Lupus nephritis
     Dosage: BID, UNKNOWN
     Route: 050
     Dates: start: 202409, end: 202409
  3. LUPKYNIS [Suspect]
     Active Substance: VOCLOSPORIN
     Dosage: UNKNOWN
     Route: 050
     Dates: start: 20240930
  4. LUPKYNIS [Suspect]
     Active Substance: VOCLOSPORIN
     Dosage: UNKNOWN
     Route: 050
     Dates: start: 202410, end: 2024
  5. LUPKYNIS [Suspect]
     Active Substance: VOCLOSPORIN
     Dosage: UNKNOWN
     Route: 050
     Dates: end: 2024

REACTIONS (10)
  - Encephalitis viral [Unknown]
  - Pyrexia [Unknown]
  - Meningitis cryptococcal [Unknown]
  - Chills [Unknown]
  - Dyspnoea [Unknown]
  - Feeling abnormal [Unknown]
  - Pain [Unknown]
  - Headache [Unknown]
  - Diarrhoea [Unknown]
  - Nausea [Unknown]
